FAERS Safety Report 16995355 (Version 1)
Quarter: 2019Q4

REPORT INFORMATION
  Report Type: Spontaneous
  Country: US (occurrence: US)
  Receive Date: 20191105
  Receipt Date: 20191105
  Transmission Date: 20200122
  Serious: Yes (Hospitalization, Other)
  Sender: FDA-Public Use
  Company Number: NVSC2019US022691

PATIENT
  Age: 39 Year
  Sex: Female

DRUGS (6)
  1. DOXYCYCLINE. [Suspect]
     Active Substance: DOXYCYCLINE
     Indication: RICKETTSIOSIS
     Dosage: UNK
     Route: 065
  2. CYCLOPHOSPHAMIDE. [Suspect]
     Active Substance: CYCLOPHOSPHAMIDE
     Indication: BREAST CANCER
     Dosage: UNK
     Route: 065
  3. PERTUZUMAB. [Suspect]
     Active Substance: PERTUZUMAB
     Indication: BREAST CANCER
     Dosage: UNK
     Route: 065
  4. PACLITAXEL. [Suspect]
     Active Substance: PACLITAXEL
     Indication: BREAST CANCER
     Dosage: UNK
     Route: 065
  5. ADRIAMYCIN [Suspect]
     Active Substance: DOXORUBICIN HYDROCHLORIDE
     Indication: BREAST CANCER
     Dosage: UNK
     Route: 065
  6. TRASTUZUMAB. [Suspect]
     Active Substance: TRASTUZUMAB
     Indication: BREAST CANCER
     Dosage: UNK
     Route: 065

REACTIONS (6)
  - Hypogammaglobulinaemia [Recovered/Resolved]
  - Opsoclonus myoclonus [Recovered/Resolved]
  - Dysarthria [Recovered/Resolved]
  - West Nile viral infection [Recovered/Resolved]
  - Ocular discomfort [Recovered/Resolved]
  - Myoclonus [Recovered/Resolved]
